FAERS Safety Report 4838591-9 (Version None)
Quarter: 2005Q4

REPORT INFORMATION
  Report Type: 
  Country: None (occurrence: None)
  Receive Date: 20051024
  Receipt Date: 20050901
  Transmission Date: 20060501
  Serious: No
  Sender: FDA-Public Use
  Company Number: 216635

PATIENT
  Age: 55 Year
  Sex: Female
  Weight: 58.5 kg

DRUGS (9)
  1. XOLAIR [Suspect]
     Indication: ASTHMA
     Dosage: 375 MG, Q2W, SUBCUTANEOUS
     Route: 058
     Dates: start: 20050623, end: 20050802
  2. ALBUTROL (ALBUTEROLM ALBUTEROL SULFATE) [Concomitant]
  3. ADVAIR (SALMETEROL XINAFOATE, FLUTICASONE PROPIONATE) [Concomitant]
  4. SINGULAIR [Concomitant]
  5. BENADRYL [Concomitant]
  6. ALLEGRA [Concomitant]
  7. FOSAMAX [Concomitant]
  8. ZOLOFT [Concomitant]
  9. TUMS (CALCIUM CARBONATE) [Concomitant]

REACTIONS (3)
  - DYSPNOEA [None]
  - HYPERSENSITIVITY [None]
  - RASH [None]
